FAERS Safety Report 18288500 (Version 2)
Quarter: 2023Q4

REPORT INFORMATION
  Report Type: Other
  Country: JP (occurrence: None)
  Receive Date: 20200921
  Receipt Date: 20231127
  Transmission Date: 20240110
  Serious: Yes (Other)
  Sender: FDA-Public Use
  Company Number: JP-SAPTALIS PHARMACEUTICALS,LLC-000002

PATIENT
  Age: 69 Year
  Sex: Female

DRUGS (3)
  1. TRIAMCINOLONE ACETONIDE [Suspect]
     Active Substance: TRIAMCINOLONE ACETONIDE
     Indication: Macular oedema
     Dosage: 20 MG, SUBTENON INJECTION, ADMINISTERED TWICE BY TRIAMCINOLONE INTO THE POSTERIOR SUBTENON SPACE
     Route: 031
  2. LIDOCAINE [Concomitant]
     Active Substance: LIDOCAINE
     Indication: Anaesthesia eye
     Dosage: EYE WAS ANAESTHETIZED WITH 4% TOPICAL LIDOCAINE.
     Route: 061
  3. LEVOFLOXACIN [Concomitant]
     Active Substance: LEVOFLOXACIN
     Indication: Product used for unknown indication
     Dosage: 1.5% TOPICAL LEVOFLOXACIN OPHTHALMIC SOLUTION WAS ADMINISTERED FOUR TIMES DAILY FOR 3 DAYS

REACTIONS (1)
  - Orbital infection [Recovered/Resolved]
